FAERS Safety Report 4436321-6 (Version None)
Quarter: 2004Q3

REPORT INFORMATION
  Report Type: 
  Country: None (occurrence: None)
  Receive Date: 20040830
  Receipt Date: 20040729
  Transmission Date: 20050211
  Serious: No
  Sender: FDA-Public Use
  Company Number: US-BRISTOL-MYERS SQUIBB COMPANY-12656245

PATIENT
  Age: 71 Year
  Sex: Male
  Weight: 84 kg

DRUGS (12)
  1. ERBITUX [Suspect]
     Indication: COLON CANCER
     Route: 042
     Dates: start: 20040513, end: 20040513
  2. CPT-11 [Concomitant]
  3. BENADRYL [Concomitant]
     Indication: PREMEDICATION
     Route: 042
     Dates: start: 20040513, end: 20040513
  4. TAGAMET [Concomitant]
     Indication: PREMEDICATION
     Route: 042
     Dates: start: 20040513, end: 20040513
  5. ANZEMET [Concomitant]
     Indication: PREMEDICATION
  6. ATROPINE [Concomitant]
     Indication: PREMEDICATION
  7. PLAVIX [Concomitant]
  8. LISINOPRIL [Concomitant]
  9. METOPROLOL [Concomitant]
  10. ISORBIDE [Concomitant]
  11. ZOCOR [Concomitant]
  12. NITRO [Concomitant]

REACTIONS (3)
  - ACNE [None]
  - ARTHRALGIA [None]
  - JOINT SWELLING [None]
